FAERS Safety Report 4958858-3 (Version None)
Quarter: 2006Q1

REPORT INFORMATION
  Report Type: 
  Country: None (occurrence: None)
  Receive Date: 20060331
  Receipt Date: 20060325
  Transmission Date: 20060701
  Serious: Yes (Hospitalization)
  Sender: FDA-Public Use
  Company Number: US-BOEHRINGER INGELHEIM PHARMACEUTICALS, INC.-2006-BP-03447BP

PATIENT
  Age: 33 Year
  Sex: Female

DRUGS (8)
  1. VIRAMUNE [Suspect]
     Indication: HIV INFECTION
     Route: 048
     Dates: start: 20040101
  2. ABACAVIR [Suspect]
     Indication: HIV INFECTION
     Dates: start: 20040101
  3. LAMIVUDINE [Suspect]
     Indication: HIV INFECTION
     Dates: start: 20040101
  4. NIFEDIPINE [Concomitant]
     Indication: HYPERTENSION
  5. TOPROL-XL [Concomitant]
     Indication: HYPERTENSION
  6. PAXIL [Concomitant]
     Indication: DEPRESSION
  7. METHADONE HCL [Concomitant]
     Indication: DRUG ABUSER
  8. INSULIN [Concomitant]
     Indication: DIABETES MELLITUS

REACTIONS (2)
  - CD4 LYMPHOCYTES DECREASED [None]
  - FUNGAL SEPSIS [None]
